FAERS Safety Report 7779649-4 (Version None)
Quarter: 2011Q3

REPORT INFORMATION
  Report Type: 
  Country: None (occurrence: None)
  Receive Date: 20110927
  Receipt Date: 20100412
  Transmission Date: 20111222
  Serious: No
  Sender: FDA-Public Use
  Company Number: US-ASTRAZENECA-2009SE19454

PATIENT
  Age: 10 Year
  Sex: Male

DRUGS (2)
  1. SEROQUEL [Suspect]
     Dosage: 200 TO 800 MG
     Route: 048
     Dates: start: 20070407
  2. TRILEPTAL [Concomitant]
     Dosage: 300 TO 1200 MG
     Route: 048
     Dates: start: 20061229

REACTIONS (2)
  - INSULIN RESISTANCE [None]
  - DIABETES MELLITUS [None]
